FAERS Safety Report 4614845-6 (Version None)
Quarter: 2005Q1

REPORT INFORMATION
  Report Type: 
  Country: None (occurrence: None)
  Receive Date: 20050318
  Receipt Date: 20050318
  Transmission Date: 20050727
  Serious: Yes (Hospitalization)
  Sender: FDA-Public Use
  Company Number: None

PATIENT
  Age: 57 Year
  Sex: Male

DRUGS (13)
  1. HUMULIN 70/30 [Suspect]
     Indication: DIABETES MELLITUS
     Dosage: 8 UNITS BID
     Dates: start: 20050103, end: 20050105
  2. ASPIRIN [Concomitant]
  3. HALOPERIDOL [Concomitant]
  4. HUMULIN R [Concomitant]
  5. METOCLOPRAMIDE HCL [Concomitant]
  6. ACTIVE METOPROLOL INJ [Concomitant]
  7. METOPROLOL TAB [Concomitant]
  8. MINOXIDIL [Concomitant]
  9. OXYCODONE AND ACETAMINOPHEN [Concomitant]
  10. PANTOPRAZOLE INJ, PWDR [Concomitant]
  11. PANTOPRAZOLE NA INJ. 40 MG IN 0.9% SODIUM CHLORIDE INJ [Concomitant]
  12. POTASSIUM CHLORIDE [Concomitant]
  13. TERAZOSIN HCL [Concomitant]

REACTIONS (3)
  - DEPRESSED LEVEL OF CONSCIOUSNESS [None]
  - HYPOGLYCAEMIA [None]
  - SEPSIS [None]
